FAERS Safety Report 24248604 (Version 2)
Quarter: 2024Q3

REPORT INFORMATION
  Report Type: Report from Study
  Country: CA (occurrence: CA)
  Receive Date: 20240826
  Receipt Date: 20240924
  Transmission Date: 20241017
  Serious: Yes (Other)
  Sender: LEO PHARM
  Company Number: CA-LEO Pharma-372156

PATIENT
  Age: 23 Year

DRUGS (6)
  1. ADBRY [Suspect]
     Active Substance: TRALOKINUMAB-LDRM
     Indication: Dermatitis atopic
     Dosage: LOADING DOSE: 600 MG SC, MAINTENANCE DOSE: 300MG EVERY 2 WEEKS SC; FORMAT: 150 MG/ML PRE-FILLED SYRI
     Route: 058
     Dates: start: 20240327
  2. ADBRY [Suspect]
     Active Substance: TRALOKINUMAB-LDRM
     Indication: Dermatitis atopic
     Dosage: LOADING DOSE: 600 MG SC, MAINTENANCE DOSE: 300MG EVERY 2 WEEKS SC; FORMAT: 150 MG/ML PRE-FILLED SYRI
     Route: 058
     Dates: start: 20240327
  3. ADBRY [Suspect]
     Active Substance: TRALOKINUMAB-LDRM
     Indication: Dermatitis atopic
     Dosage: LOADING DOSE: 600 MG SC, MAINTENANCE DOSE: 300MG EVERY 2 WEEKS SC; FORMAT: 150 MG/ML PRE-FILLED SYRI
     Route: 058
     Dates: start: 20240327
  4. ADBRY [Suspect]
     Active Substance: TRALOKINUMAB-LDRM
     Indication: Dermatitis atopic
     Dosage: MAINTENANCE DOSE: 300MG EVERY 2 WEEKS SC; FORMAT: 150 MG/ML PRE-FILLED SYRINGE, TREATMENT ON HOLD UN
     Route: 058
     Dates: end: 20240801
  5. ADBRY [Suspect]
     Active Substance: TRALOKINUMAB-LDRM
     Indication: Dermatitis atopic
     Dosage: MAINTENANCE DOSE: 300MG EVERY 2 WEEKS SC; FORMAT: 150 MG/ML PRE-FILLED SYRINGE, TREATMENT ON HOLD UN
     Route: 058
     Dates: end: 20240801
  6. ADBRY [Suspect]
     Active Substance: TRALOKINUMAB-LDRM
     Indication: Dermatitis atopic
     Dosage: MAINTENANCE DOSE: 300MG EVERY 2 WEEKS SC; FORMAT: 150 MG/ML PRE-FILLED SYRINGE, TREATMENT ON HOLD UN
     Route: 058
     Dates: end: 20240801

REACTIONS (3)
  - Pneumonia [Unknown]
  - Sinusitis [Recovered/Resolved]
  - Sinusitis [Not Recovered/Not Resolved]

NARRATIVE: CASE EVENT DATE: 20240501
